FAERS Safety Report 8027613-2 (Version None)
Quarter: 2011Q4

REPORT INFORMATION
  Report Type: 
  Country: None (occurrence: None)
  Receive Date: 20111130
  Receipt Date: 20110428
  Transmission Date: 20120403
  Serious: Yes (Hospitalization, Other)
  Sender: FDA-Public Use
  Company Number: US200903003324

PATIENT
  Age: 57 Year
  Sex: Female
  Weight: 78.5 kg

DRUGS (18)
  1. ALTACE [Concomitant]
  2. ESTRACE [Concomitant]
  3. NIASPAN [Concomitant]
  4. LASIX [Concomitant]
  5. PROTONIX [Concomitant]
  6. COREG [Concomitant]
  7. LIPITOR [Concomitant]
  8. METFORMIN HCL [Concomitant]
  9. BYETTA [Suspect]
     Dosage: UNK, UNK
     Dates: start: 20080423, end: 20080701
  10. BYETTA [Suspect]
     Dosage: UNK, UNK
     Dates: start: 20071001, end: 20080101
  11. BYETTA [Suspect]
     Dosage: UNK, UNK
     Dates: start: 20080206, end: 20080306
  12. BYETTA [Suspect]
     Dosage: UNK, UNK
     Dates: start: 20090101, end: 20090201
  13. EXENATIDE UNK STRENGTH PEN, DISPOSABLE DEVICE (EXENATIDE PEN (UNKNOWN [Concomitant]
  14. SIMVASTATIN [Concomitant]
  15. AMARYL [Concomitant]
  16. ASPIRIN [Concomitant]
  17. LORTAB [Concomitant]
  18. LOVAZA [Concomitant]

REACTIONS (3)
  - PANCREATITIS ACUTE [None]
  - RENAL INJURY [None]
  - WEIGHT DECREASED [None]
